FAERS Safety Report 9831790 (Version 2)
Quarter: 2014Q1

REPORT INFORMATION
  Report Type: Spontaneous
  Country: US (occurrence: US)
  Receive Date: 20140121
  Receipt Date: 20140121
  Transmission Date: 20141002
  Serious: No
  Sender: FDA-Public Use
  Company Number: US-PFIZER INC-2013054682

PATIENT
  Sex: Female

DRUGS (9)
  1. ENBREL [Suspect]
     Dosage: UNK
  2. METHOTREXATE SODIUM [Suspect]
     Dosage: UNK
  3. IBUPROFEN [Suspect]
     Dosage: UNK
  4. PLAQUENIL [Suspect]
     Dosage: UNK
  5. PREDNISONE [Suspect]
     Dosage: UNK
  6. VICODIN [Suspect]
     Dosage: UNK
  7. LEUCOVORIN [Suspect]
     Dosage: UNK
  8. BIOFREEZE [Suspect]
     Dosage: UNK
  9. JOINTFLEX PAIN RELIEVING CREAM [Suspect]
     Dosage: UNK

REACTIONS (3)
  - Pain [Unknown]
  - Fatigue [Unknown]
  - Drug effect incomplete [Unknown]
